FAERS Safety Report 8114681-2 (Version None)
Quarter: 2012Q1

REPORT INFORMATION
  Report Type: 
  Country: None (occurrence: None)
  Receive Date: 20120206
  Receipt Date: 20120204
  Transmission Date: 20120608
  Serious: Yes (Other)
  Sender: FDA-Public Use
  Company Number: US-PFIZER INC-2012030933

PATIENT
  Sex: Male
  Weight: 93.878 kg

DRUGS (2)
  1. CHANTIX [Suspect]
     Indication: SMOKING CESSATION THERAPY
     Dosage: 0.5 MG, DAILY
     Route: 048
     Dates: start: 20111201
  2. CHANTIX [Suspect]
     Dosage: 1 MG, 2X/DAY
     Route: 048
     Dates: end: 20120101

REACTIONS (4)
  - DYSGEUSIA [None]
  - ACTIVITIES OF DAILY LIVING IMPAIRED [None]
  - HOMICIDAL IDEATION [None]
  - NAUSEA [None]
